FAERS Safety Report 15074561 (Version 1)
Quarter: 2018Q2

REPORT INFORMATION
  Report Type: Spontaneous
  Country: US (occurrence: US)
  Receive Date: 20180627
  Receipt Date: 20180627
  Transmission Date: 20180711
  Serious: No
  Sender: FDA-Public Use
  Company Number: US-SAOL THERAPEUTICS-2018SAO00433

PATIENT
  Sex: Male
  Weight: 93.88 kg

DRUGS (3)
  1. VALIUM [Suspect]
     Active Substance: DIAZEPAM
  2. FENTANYL. [Suspect]
     Active Substance: FENTANYL
     Dosage: 1699.2 ?G, \DAY
     Route: 037
  3. BACLOFEN. [Suspect]
     Active Substance: BACLOFEN
     Indication: MUSCLE SPASTICITY
     Dosage: 1699.2 ?G, \DAY
     Route: 037

REACTIONS (2)
  - Disorientation [Recovered/Resolved]
  - Complication associated with device [Recovered/Resolved]

NARRATIVE: CASE EVENT DATE: 2016
